FAERS Safety Report 4295845-5 (Version None)
Quarter: 2004Q1

REPORT INFORMATION
  Report Type: 
  Country: None (occurrence: None)
  Receive Date: 20040216
  Receipt Date: 20031208
  Transmission Date: 20041129
  Serious: No
  Sender: FDA-Public Use
  Company Number: US-GLAXOSMITHKLINE-A0440454A

PATIENT
  Age: 14 Year
  Sex: Female

DRUGS (7)
  1. LAMICTAL [Suspect]
     Dosage: 25MG PER DAY
     Route: 048
     Dates: start: 20030917, end: 20031110
  2. WELLBUTRIN [Concomitant]
     Indication: DEPRESSION
     Dosage: 150MG TWICE PER DAY
     Route: 048
     Dates: start: 20030805
  3. GABITRIL [Concomitant]
     Indication: ANXIETY
     Dosage: 8MG THREE TIMES PER DAY
     Route: 048
  4. CLARITIN [Concomitant]
     Route: 048
  5. MINOCIN [Concomitant]
     Route: 048
  6. FLOVENT [Concomitant]
     Route: 055
  7. ALBUTEROL [Concomitant]
     Route: 055

REACTIONS (1)
  - RASH [None]
